FAERS Safety Report 6510888-6 (Version None)
Quarter: 2009Q4

REPORT INFORMATION
  Report Type: 
  Country: None (occurrence: None)
  Receive Date: 20091222
  Receipt Date: 20090115
  Transmission Date: 20100525
  Serious: No
  Sender: FDA-Public Use
  Company Number: US-ASTRAZENECA-2009UW01322

PATIENT
  Age: 68 Year
  Sex: Female
  Weight: 95.3 kg

DRUGS (4)
  1. CRESTOR [Suspect]
     Indication: BLOOD CHOLESTEROL INCREASED
     Route: 048
     Dates: start: 20081101
  2. SYNTHROID [Concomitant]
  3. CELEXA [Concomitant]
  4. MULTI-VITAMINS [Concomitant]

REACTIONS (1)
  - ALOPECIA [None]
